FAERS Safety Report 6349790-1 (Version None)
Quarter: 2009Q3

REPORT INFORMATION
  Report Type: 
  Country: None (occurrence: None)
  Receive Date: 20090911
  Receipt Date: 20090901
  Transmission Date: 20100115
  Serious: Yes (Hospitalization)
  Sender: FDA-Public Use
  Company Number: JP-SANOFI-SYNTHELABO-A01200909333

PATIENT
  Sex: Male
  Weight: 64 kg

DRUGS (5)
  1. BEVACIZUMAB [Suspect]
     Indication: LARGE INTESTINE CARCINOMA
     Dosage: 5 MG/KG
     Route: 041
     Dates: start: 20090827, end: 20090827
  2. FLUOROURACIL [Suspect]
     Indication: LARGE INTESTINE CARCINOMA
     Dosage: 400 MG/M2
     Route: 040
     Dates: start: 20090827, end: 20090827
  3. FLUOROURACIL [Suspect]
     Dosage: 2400 MG/M2
     Route: 041
     Dates: start: 20090827, end: 20090828
  4. CALCIUM LEVOFOLINATE [Suspect]
     Indication: LARGE INTESTINE CARCINOMA
     Dosage: 200 MG/M2
     Route: 041
     Dates: start: 20090827, end: 20090827
  5. OXALIPLATIN [Suspect]
     Indication: LARGE INTESTINE CARCINOMA
     Dosage: 85 MG/M2
     Route: 041
     Dates: start: 20090827, end: 20090827

REACTIONS (1)
  - CHOLANGITIS [None]
